FAERS Safety Report 4729815-7 (Version None)
Quarter: 2005Q3

REPORT INFORMATION
  Report Type: 
  Country: None (occurrence: None)
  Receive Date: 20050801
  Receipt Date: 20030828
  Transmission Date: 20060218
  Serious: Yes (Other)
  Sender: FDA-Public Use
  Company Number: US-MERCK-0308USA02817

PATIENT
  Age: 77 Year
  Sex: Female
  Weight: 32 kg

DRUGS (16)
  1. FOSAMAX [Suspect]
     Indication: OSTEOPOROSIS
     Route: 048
     Dates: start: 20020101, end: 20020101
  2. FOSAMAX [Suspect]
     Route: 048
     Dates: end: 20020101
  3. FOSAMAX [Suspect]
     Route: 048
  4. FOSAMAX [Suspect]
     Route: 048
     Dates: start: 20021201, end: 20021201
  5. FOSAMAX [Suspect]
     Route: 048
     Dates: start: 20010901, end: 20010901
  6. FOSAMAX [Suspect]
     Route: 048
     Dates: start: 20050101
  7. FOSAMAX [Suspect]
     Route: 048
     Dates: end: 20050101
  8. FOSAMAX [Suspect]
     Indication: OSTEOARTHRITIS
     Route: 048
     Dates: start: 20020101, end: 20020101
  9. FOSAMAX [Suspect]
     Route: 048
     Dates: end: 20020101
  10. FOSAMAX [Suspect]
     Route: 048
  11. FOSAMAX [Suspect]
     Route: 048
     Dates: start: 20021201, end: 20021201
  12. FOSAMAX [Suspect]
     Route: 048
     Dates: start: 20010901, end: 20010901
  13. FOSAMAX [Suspect]
     Route: 048
     Dates: start: 20050101
  14. FOSAMAX [Suspect]
     Route: 048
     Dates: end: 20050101
  15. LISINOPRIL [Concomitant]
     Route: 065
  16. DIURETIC (UNSPECIFIED) [Concomitant]
     Route: 065

REACTIONS (9)
  - ADVERSE EVENT [None]
  - ANOREXIA [None]
  - DIZZINESS [None]
  - DRUG INTOLERANCE [None]
  - EPISTAXIS [None]
  - HEADACHE [None]
  - MALAISE [None]
  - VISION BLURRED [None]
  - WEIGHT DECREASED [None]
